FAERS Safety Report 7183175-3 (Version None)
Quarter: 2010Q4

REPORT INFORMATION
  Report Type: 
  Country: None (occurrence: None)
  Receive Date: 20101220
  Receipt Date: 20101220
  Transmission Date: 20110411
  Serious: Yes (Hospitalization)
  Sender: FDA-Public Use
  Company Number: None

PATIENT
  Age: 61 Year
  Sex: Male

DRUGS (2)
  1. DABIGATRAN [Suspect]
     Indication: ATRIAL FIBRILLATION
     Dosage: 150 MG BID PO
     Route: 048
     Dates: start: 20101209, end: 20101216
  2. DABIGATRAN [Suspect]
     Indication: DEEP VEIN THROMBOSIS
     Dosage: 150 MG BID PO
     Route: 048
     Dates: start: 20101209, end: 20101216

REACTIONS (1)
  - DEEP VEIN THROMBOSIS [None]
